FAERS Safety Report 15617073 (Version 1)
Quarter: 2018Q4

REPORT INFORMATION
  Report Type: Spontaneous
  Country: CA (occurrence: CA)
  Receive Date: 20181110
  Receipt Date: 20181110
  Transmission Date: 20190205
  Serious: No
  Sender: FDA-Public Use
  Company Number: None

PATIENT
  Age: 33 Year
  Sex: Male
  Weight: 75 kg

DRUGS (4)
  1. FISH OIL [Concomitant]
     Active Substance: FISH OIL
  2. WHOLE FOODS VITAMINS [Concomitant]
  3. MINERALS [Concomitant]
     Active Substance: MINERALS
  4. AURO CEFIXIME [Suspect]
     Active Substance: CEFIXIME
     Indication: KIDNEY INFECTION
     Dosage: ?          QUANTITY:1 DF DOSAGE FORM;?
     Route: 048
     Dates: start: 20181031, end: 20181101

REACTIONS (4)
  - Escherichia infection [None]
  - Abdominal pain upper [None]
  - Insomnia [None]
  - Pruritus generalised [None]

NARRATIVE: CASE EVENT DATE: 20181031
